FAERS Safety Report 23703761 (Version 2)
Quarter: 2024Q3

REPORT INFORMATION
  Report Type: Spontaneous
  Country: JP (occurrence: JP)
  Receive Date: 20240403
  Receipt Date: 20240717
  Transmission Date: 20241017
  Serious: Yes (Hospitalization)
  Sender: CARA THERAPEUTICS
  Company Number: JP-CARA THERAPEUTICS, INC.-2024-00181-JP

PATIENT
  Age: 91 Year
  Sex: Male
  Weight: 53 kg

DRUGS (11)
  1. KORSUVA [Suspect]
     Active Substance: DIFELIKEFALIN ACETATE
     Indication: Pruritus
     Dosage: 25 ?G/ (25 ?G/   )
     Route: 042
     Dates: start: 20240305, end: 20240321
  2. EPOETIN BETA [Concomitant]
     Active Substance: ERYTHROPOIETIN
     Dosage: 3000 IU/
     Route: 042
  3. IRON SUCROSE [Concomitant]
     Active Substance: IRON SUCROSE
     Dosage: 40 MG/
     Route: 042
     Dates: start: 20240130, end: 20240402
  4. BISOPROLOL [Concomitant]
     Active Substance: BISOPROLOL\BISOPROLOL FUMARATE
  5. VONOPRAZAN FUMARATE [Concomitant]
     Active Substance: VONOPRAZAN FUMARATE
     Dosage: 10 MG//
     Route: 048
  6. OLOPATADINE [Concomitant]
     Active Substance: OLOPATADINE
     Dosage: 2.5 MG/
     Route: 048
  7. DISTIGMINE BROMIDE [Concomitant]
     Active Substance: DISTIGMINE BROMIDE
     Dosage: 2.5 MG/
     Route: 048
  8. NAFTOPIDIL [Concomitant]
     Active Substance: NAFTOPIDIL
     Dosage: 25 MG/
     Route: 048
  9. AMBROXOL HYDROCHLORIDE [Concomitant]
     Active Substance: AMBROXOL HYDROCHLORIDE
     Dosage: 45 MG/
     Route: 048
  10. MIYA-BM [Concomitant]
     Active Substance: CLOSTRIDIUM BUTYRICUM SPORES STRAIN M-55
     Dosage: 1 DF/
     Route: 048
  11. LEUPLIN [Concomitant]
     Active Substance: LEUPROLIDE ACETATE
     Dosage: 22.5 MG/
     Route: 058

REACTIONS (2)
  - Hypotension [Recovering/Resolving]
  - Restlessness [Recovering/Resolving]

NARRATIVE: CASE EVENT DATE: 20240321
